FAERS Safety Report 4371496-9 (Version None)
Quarter: 2004Q2

REPORT INFORMATION
  Report Type: 
  Country: None (occurrence: None)
  Receive Date: 20040602
  Receipt Date: 20040520
  Transmission Date: 20050107
  Serious: Yes (Other)
  Sender: FDA-Public Use
  Company Number: 2004007885

PATIENT
  Age: 49 Year
  Sex: Female
  Weight: 63.05 kg

DRUGS (7)
  1. DILANTIN [Suspect]
     Indication: ILL-DEFINED DISORDER
     Dates: start: 20030501, end: 20030101
  2. NEURONTIN [Suspect]
     Indication: PARTIAL SEIZURES
     Dosage: 1200 MG (TID), ORAL
     Route: 048
     Dates: start: 20040118, end: 20040201
  3. PHENOBARBITAL TAB [Suspect]
     Indication: ILL-DEFINED DISORDER
     Dosage: 75 MG (DAILY), ORAL
     Route: 048
     Dates: start: 20030501
  4. TOPIRAMATE [Suspect]
     Indication: ILL-DEFINED DISORDER
     Dosage: 100 MG (DAILY)
     Dates: start: 20030601, end: 20030801
  5. OXCARBAZEPINE (OXCARBAZEPINE) [Suspect]
     Indication: ILL-DEFINED DISORDER
     Dates: start: 20030101, end: 20031001
  6. LEVETIRACETAM [Suspect]
     Indication: ILL-DEFINED DISORDER
     Dosage: 500 MG (250 MG, BID), ORAL
     Route: 048
     Dates: start: 20031001
  7. FLUOXETINE [Concomitant]

REACTIONS (14)
  - ABDOMINAL PAIN UPPER [None]
  - ARTHRALGIA [None]
  - CONDITION AGGRAVATED [None]
  - CONVULSION [None]
  - DIFFICULTY IN WALKING [None]
  - FEELING ABNORMAL [None]
  - HYPOAESTHESIA [None]
  - INSOMNIA [None]
  - PAIN [None]
  - PAIN IN EXTREMITY [None]
  - PARTIAL SEIZURES [None]
  - PERIARTHRITIS [None]
  - RASH [None]
  - VAGINAL HAEMORRHAGE [None]
